FAERS Safety Report 7215671-4 (Version None)
Quarter: 2010Q4

REPORT INFORMATION
  Report Type: 
  Country: None (occurrence: None)
  Receive Date: 20101126
  Receipt Date: 20101018
  Transmission Date: 20110411
  Serious: No
  Sender: FDA-Public Use
  Company Number: 316989

PATIENT
  Age: 43 Year
  Sex: Female

DRUGS (2)
  1. VICTOZA [Suspect]
     Indication: BLOOD GLUCOSE INCREASED
     Dosage: 1.2 MG, QD, SUBCUTANEOUS
     Route: 058
     Dates: start: 20101001, end: 20101001
  2. VICTOZA [Suspect]
     Indication: OBESITY
     Dosage: 1.2 MG, QD, SUBCUTANEOUS
     Route: 058
     Dates: start: 20101001, end: 20101001

REACTIONS (1)
  - FATIGUE [None]
